FAERS Safety Report 9475656 (Version 2)
Quarter: 2013Q3

REPORT INFORMATION
  Report Type: Spontaneous
  Country: IT (occurrence: IT)
  Receive Date: 20130826
  Receipt Date: 20130828
  Transmission Date: 20140515
  Serious: Yes (Hospitalization)
  Sender: FDA-Public Use
  Company Number: PHHY2013IT091618

PATIENT
  Sex: 0

DRUGS (1)
  1. CARBAMAZEPINE [Suspect]
     Indication: EPILEPSY CONGENITAL
     Dosage: 550 MG, DAILY
     Route: 048
     Dates: end: 20130622

REACTIONS (4)
  - Asthenia [Recovered/Resolved]
  - Encephalopathy [Recovered/Resolved]
  - Sopor [Recovered/Resolved]
  - Hepatitis toxic [Recovered/Resolved]
